FAERS Safety Report 7205406-3 (Version None)
Quarter: 2010Q4

REPORT INFORMATION
  Report Type: 
  Country: None (occurrence: None)
  Receive Date: 20101231
  Receipt Date: 20101221
  Transmission Date: 20110411
  Serious: Yes (Hospitalization, Disabling, Other)
  Sender: FDA-Public Use
  Company Number: CH-PFIZER INC-2010176284

PATIENT
  Age: 89 Year
  Sex: Female
  Weight: 50 kg

DRUGS (5)
  1. DILTIAZEM [Suspect]
     Indication: ESSENTIAL HYPERTENSION
     Dosage: 90 MG, 2X/DAY
     Route: 048
     Dates: end: 20100815
  2. RISPERDAL [Suspect]
     Indication: ANXIETY DISORDER
     Dosage: 0.5 MG, 2X/DAY
     Route: 048
  3. SEROQUEL [Suspect]
     Indication: ANXIETY DISORDER
     Dosage: 25 MG, 1X/DAY
     Route: 048
  4. IBUPROFEN [Suspect]
     Dosage: 600 MG, AS NEEDED
     Route: 048
  5. ASPIRIN [Concomitant]
     Indication: PROPHYLAXIS
     Dosage: 100 MG, 1X/DAY
     Route: 048

REACTIONS (5)
  - ATAXIA [None]
  - BRADYCARDIA [None]
  - GAIT DISTURBANCE [None]
  - HYPERTENSION [None]
  - RENAL FAILURE [None]
